FAERS Safety Report 20075931 (Version 1)
Quarter: 2021Q4

REPORT INFORMATION
  Report Type: Spontaneous
  Country: US (occurrence: None)
  Receive Date: 20211116
  Receipt Date: 20211116
  Transmission Date: 20220303
  Serious: Yes (Death)
  Sender: FDA-Public Use
  Company Number: None

PATIENT
  Age: 37 Year
  Sex: Male
  Weight: 52.5 kg

DRUGS (2)
  1. TOCILIZUMAB [Suspect]
     Active Substance: TOCILIZUMAB
     Indication: COVID-19
     Dosage: FREQUENCY : ONCE;?
     Route: 042
     Dates: start: 20211016, end: 20211016
  2. DEXAMETHASONE [Concomitant]
     Active Substance: DEXAMETHASONE
     Dates: start: 20211016, end: 20211025

REACTIONS (12)
  - Hypoxia [None]
  - Oxygen saturation decreased [None]
  - Diarrhoea [None]
  - Tachycardia [None]
  - Hypotension [None]
  - Lung opacity [None]
  - Pleural effusion [None]
  - Supraventricular tachycardia [None]
  - Tracheal pain [None]
  - Agitation [None]
  - Ventricular dyssynchrony [None]
  - Lung infiltration [None]

NARRATIVE: CASE EVENT DATE: 20211111
